FAERS Safety Report 14092148 (Version 2)
Quarter: 2018Q1

REPORT INFORMATION
  Report Type: Spontaneous
  Country: US (occurrence: US)
  Receive Date: 20171016
  Receipt Date: 20180123
  Transmission Date: 20180508
  Serious: No
  Sender: FDA-Public Use
  Company Number: US-PFIZER INC-2017443999

PATIENT
  Age: 63 Year
  Sex: Female

DRUGS (2)
  1. METHOTREXATE SODIUM. [Suspect]
     Active Substance: METHOTREXATE SODIUM
     Indication: RHEUMATOID ARTHRITIS
     Dosage: UNK
  2. CELECOXIB. [Concomitant]
     Active Substance: CELECOXIB
     Dosage: 200 MG, UNK

REACTIONS (2)
  - Drug hypersensitivity [Unknown]
  - Cough [Unknown]
